FAERS Safety Report 6366266-6 (Version None)
Quarter: 2009Q3

REPORT INFORMATION
  Report Type: 
  Country: None (occurrence: None)
  Receive Date: 20090921
  Receipt Date: 20090910
  Transmission Date: 20100115
  Serious: Yes (Other)
  Sender: FDA-Public Use
  Company Number: GR-SANOFI-SYNTHELABO-A01200909483

PATIENT
  Age: 80 Year
  Sex: Female

DRUGS (6)
  1. THYRO-4 [Concomitant]
     Indication: THYROID DISORDER
     Dosage: UNK
     Route: 065
  2. INEGY [Concomitant]
     Indication: HYPERLIPIDAEMIA
     Dosage: UNK
     Route: 065
  3. COVERSYL [Concomitant]
     Indication: HYPERTENSION
     Dosage: UNK
     Route: 065
  4. LOPRESSOR [Concomitant]
     Indication: DRUG USE FOR UNKNOWN INDICATION
     Dosage: UNK
     Route: 065
  5. MONOSORDIL [Concomitant]
     Indication: DRUG USE FOR UNKNOWN INDICATION
     Dosage: UNK
     Route: 065
  6. PLAVIX [Suspect]
     Indication: DRUG USE FOR UNKNOWN INDICATION
     Route: 048

REACTIONS (1)
  - POSTOPERATIVE THROMBOSIS [None]
